FAERS Safety Report 4364168-8 (Version None)
Quarter: 2004Q2

REPORT INFORMATION
  Report Type: 
  Country: None (occurrence: None)
  Receive Date: 20040519
  Receipt Date: 20040507
  Transmission Date: 20050107
  Serious: Yes (Death)
  Sender: FDA-Public Use
  Company Number: US-JNJFOC-20040501563

PATIENT
  Age: 67 Year
  Sex: Female

DRUGS (19)
  1. INFLIXIMAB (INFLIXIMAB, RECOMBINANT) LYOPHILIZED POWDER [Suspect]
     Indication: RHEUMATOID ARTHRITIS
     Dosage: , 1 IN 1 DAY, INTRAVENOUS
     Route: 042
     Dates: start: 20020911, end: 20030109
  2. UNIVASC [Concomitant]
  3. LASIX [Concomitant]
  4. LOPRESSOR [Concomitant]
  5. PREDNISONE [Concomitant]
  6. SYNTHROID [Concomitant]
  7. ASCRIPTIN (ASCRIPTIN) [Concomitant]
  8. CLARITIN [Concomitant]
  9. EFFEXOR [Concomitant]
  10. FOLIC ACID [Concomitant]
  11. ALLOPURINOL [Concomitant]
  12. AVANDIA [Concomitant]
  13. INSULIN [Concomitant]
  14. AMARYL [Concomitant]
  15. ELAVIL [Concomitant]
  16. DARVOCET [Concomitant]
  17. LIPITOR [Concomitant]
  18. METHOTREXATE [Concomitant]
  19. MIRAPEX [Concomitant]

REACTIONS (4)
  - ANAEMIA [None]
  - CARDIAC FAILURE CONGESTIVE [None]
  - MYOCARDIAL INFARCTION [None]
  - PNEUMONIA [None]
